FAERS Safety Report 8348843-6 (Version None)
Quarter: 2012Q2

REPORT INFORMATION
  Report Type: 
  Country: None (occurrence: None)
  Receive Date: 20120510
  Receipt Date: 20120507
  Transmission Date: 20120825
  Serious: No
  Sender: FDA-Public Use
  Company Number: US-PFIZER INC-2012112023

PATIENT
  Sex: Female
  Weight: 81.633 kg

DRUGS (3)
  1. POTASSIUM PENICILLIN G [Suspect]
     Dosage: UNK
     Dates: start: 20090101
  2. XANAX [Concomitant]
     Indication: ANXIETY
     Dosage: 0.5 MG, AS NEEDED
  3. PAXIL [Concomitant]
     Indication: DEPRESSION
     Dosage: 20 MG, 2X/DAY

REACTIONS (1)
  - DRUG HYPERSENSITIVITY [None]
